FAERS Safety Report 25518856 (Version 1)
Quarter: 2025Q3

REPORT INFORMATION
  Report Type: Spontaneous
  Country: EU (occurrence: EU)
  Receive Date: 20250704
  Receipt Date: 20250704
  Transmission Date: 20251021
  Serious: Yes (Life-Threatening)
  Sender: TEVA
  Company Number: None

PATIENT
  Age: 31 Year
  Sex: Female
  Weight: 123 kg

DRUGS (4)
  1. QUETIAPINE [Suspect]
     Active Substance: QUETIAPINE
     Indication: Mental disorder
     Route: 048
     Dates: start: 20250325, end: 20250409
  2. PAROXETINE [Concomitant]
     Active Substance: PAROXETINE
     Indication: Mental disorder
     Dosage: 20 MG X1/DAY; PAROXETINE MYLAN
     Route: 048
     Dates: start: 20241119, end: 20250409
  3. QUETIAPINE [Suspect]
     Active Substance: QUETIAPINE
     Indication: Mental disorder
     Dosage: QUETIAPINE MYLAN PHARMA LP
     Route: 048
     Dates: start: 20250115, end: 20250324
  4. LAMICTAL [Suspect]
     Active Substance: LAMOTRIGINE
     Indication: Mental disorder
     Route: 048
     Dates: start: 20250319, end: 20250409

REACTIONS (3)
  - Toxic epidermal necrolysis [Recovering/Resolving]
  - Incorrect dosage administered [Recovered/Resolved]
  - Product availability issue [Not Recovered/Not Resolved]

NARRATIVE: CASE EVENT DATE: 20250319
